FAERS Safety Report 4281024-4 (Version None)
Quarter: 2004Q1

REPORT INFORMATION
  Report Type: 
  Country: None (occurrence: None)
  Receive Date: 20040129
  Receipt Date: 20030211
  Transmission Date: 20041129
  Serious: No
  Sender: FDA-Public Use
  Company Number: US-BRISTOL-MYERS SQUIBB COMPANY-12185773

PATIENT
  Age: 74 Year
  Sex: Female

DRUGS (1)
  1. CISPLATIN [Suspect]
     Indication: BREAST CANCER
     Route: 042
     Dates: start: 20030211, end: 20030211

REACTIONS (2)
  - HYPERSENSITIVITY [None]
  - NAUSEA [None]
